FAERS Safety Report 19577246 (Version 1)
Quarter: 2021Q3

REPORT INFORMATION
  Report Type: Report from Study
  Country: None (occurrence: CO)
  Receive Date: 20210719
  Receipt Date: 20210719
  Transmission Date: 20211014
  Serious: Yes (Other)
  Sender: FDA-Public Use
  Company Number: CO-ABBVIE-18K-036-2496597-00

PATIENT
  Age: 63 Year
  Sex: Male
  Weight: 41 kg

DRUGS (4)
  1. HUMIRA [Suspect]
     Active Substance: ADALIMUMAB
     Indication: ANKYLOSING SPONDYLITIS
     Route: 058
     Dates: start: 20120830
  2. HUMIRA [Suspect]
     Active Substance: ADALIMUMAB
     Indication: ANKYLOSING SPONDYLITIS
     Route: 058
     Dates: end: 20210530
  3. ALENDRONATE [Concomitant]
     Active Substance: ALENDRONATE SODIUM
     Indication: ANKYLOSING SPONDYLITIS
  4. CALCIUM CITRATE [Concomitant]
     Active Substance: CALCIUM CITRATE
     Indication: ANKYLOSING SPONDYLITIS

REACTIONS (21)
  - Decreased appetite [Recovering/Resolving]
  - Chest pain [Recovered/Resolved]
  - Pain in extremity [Unknown]
  - Angiopathy [Not Recovered/Not Resolved]
  - Weight decreased [Unknown]
  - Hypothyroidism [Recovering/Resolving]
  - Joint range of motion decreased [Unknown]
  - Discomfort [Recovered/Resolved]
  - Headache [Recovered/Resolved]
  - Rash [Recovering/Resolving]
  - Influenza [Recovering/Resolving]
  - Arthralgia [Unknown]
  - Pyrexia [Recovered/Resolved]
  - Hypersensitivity [Recovered/Resolved]
  - Toxicity to various agents [Recovering/Resolving]
  - Thyroid disorder [Recovering/Resolving]
  - Lung infiltration [Recovering/Resolving]
  - Vomiting [Recovering/Resolving]
  - Headache [Recovering/Resolving]
  - Dizziness [Recovering/Resolving]
  - Nausea [Recovering/Resolving]

NARRATIVE: CASE EVENT DATE: 2018
